FAERS Safety Report 8820730 (Version 1)
Quarter: 2012Q4

REPORT INFORMATION
  Report Type: 
  Country: GB (occurrence: GB)
  Receive Date: 20121002
  Receipt Date: 20121002
  Transmission Date: 20130627
  Serious: Yes (Other)
  Sender: FDA-Public Use
  Company Number: GB-PFIZER INC-2012239857

PATIENT
  Sex: Female

DRUGS (1)
  1. CHAMPIX [Suspect]
     Indication: SMOKING CESSATION THERAPY
     Dosage: 0.5 mg- 2 mg
     Route: 048
     Dates: start: 20120901, end: 20120911

REACTIONS (4)
  - Urticaria [Not Recovered/Not Resolved]
  - Lip swelling [Recovering/Resolving]
  - Oedema mouth [Recovering/Resolving]
  - Anaphylactic reaction [Not Recovered/Not Resolved]
